FAERS Safety Report 16374944 (Version 1)
Quarter: 2019Q2

REPORT INFORMATION
  Report Type: Spontaneous
  Country: BR (occurrence: BR)
  Receive Date: 20190531
  Receipt Date: 20190531
  Transmission Date: 20190711
  Serious: Yes (Other)
  Sender: FDA-Public Use
  Company Number: BR-ROCHE-2328582

PATIENT
  Sex: Female

DRUGS (2)
  1. RIVOTRIL [Suspect]
     Active Substance: CLONAZEPAM
     Indication: INSOMNIA
     Dosage: AT NIGHT
     Route: 048
  2. RIVOTRIL [Suspect]
     Active Substance: CLONAZEPAM
     Dosage: HALF TABLET ONCE DAILY AT NIGHT
     Route: 048

REACTIONS (5)
  - Blood pressure increased [Unknown]
  - Off label use [Unknown]
  - Hypoaesthesia oral [Unknown]
  - Intentional product use issue [Unknown]
  - Myocardial infarction [Unknown]
